FAERS Safety Report 20611421 (Version 2)
Quarter: 2022Q1

REPORT INFORMATION
  Report Type: Spontaneous
  Country: JP (occurrence: JP)
  Receive Date: 20220318
  Receipt Date: 20220331
  Transmission Date: 20220423
  Serious: Yes (Other)
  Sender: FDA-Public Use
  Company Number: JP-SA-SAC20220316001919

PATIENT
  Age: 30 Year
  Sex: Male
  Weight: 38 kg

DRUGS (3)
  1. XYZAL [Suspect]
     Active Substance: LEVOCETIRIZINE DIHYDROCHLORIDE
     Indication: Pruritus
     Dosage: 2 DF, QD
  2. XYZAL [Suspect]
     Active Substance: LEVOCETIRIZINE DIHYDROCHLORIDE
     Dosage: 2.5 MG, BID
  3. PHENYTOIN [Concomitant]
     Active Substance: PHENYTOIN

REACTIONS (6)
  - Pulmonary hypertension [Not Recovered/Not Resolved]
  - Pruritus [Recovered/Resolved]
  - Skin injury [Recovered/Resolved]
  - Inappropriate schedule of product administration [Unknown]
  - Off label use [Unknown]
  - Therapeutic product effect incomplete [Unknown]
